FAERS Safety Report 12563718 (Version 1)
Quarter: 2016Q3

REPORT INFORMATION
  Report Type: Spontaneous
  Country: US (occurrence: US)
  Receive Date: 20160716
  Receipt Date: 20160716
  Transmission Date: 20161109
  Serious: Yes (Hospitalization)
  Sender: FDA-Public Use
  Company Number: US-ABBVIE-16K-163-1671746-00

PATIENT
  Sex: Female

DRUGS (2)
  1. CYCLOSPORINE. [Concomitant]
     Active Substance: CYCLOSPORINE
     Indication: PRODUCT USED FOR UNKNOWN INDICATION
  2. HUMIRA [Suspect]
     Active Substance: ADALIMUMAB
     Indication: COLITIS ULCERATIVE
     Route: 058

REACTIONS (9)
  - Deep vein thrombosis [Unknown]
  - Exposure during pregnancy [Unknown]
  - Pain [Unknown]
  - Dehydration [Unknown]
  - Intestinal obstruction [Unknown]
  - Prolapse [Unknown]
  - Colitis ulcerative [Unknown]
  - Normal newborn [Unknown]
  - Infection [Unknown]

NARRATIVE: CASE EVENT DATE: 20160216
